FAERS Safety Report 18333972 (Version 1)
Quarter: 2020Q3

REPORT INFORMATION
  Report Type: Spontaneous
  Country: US (occurrence: US)
  Receive Date: 20200930
  Receipt Date: 20200930
  Transmission Date: 20201103
  Serious: Yes (Hospitalization, Other)
  Sender: FDA-Public Use
  Company Number: None

PATIENT
  Age: 52 Year
  Sex: Male
  Weight: 138 kg

DRUGS (7)
  1. AMLODIPINE 10 MG [Concomitant]
     Active Substance: AMLODIPINE BESYLATE
  2. DEXAMETHASONE 4 MG [Concomitant]
     Active Substance: DEXAMETHASONE
  3. BUTALBITAL/ACETAMINOPHEN/CAFFEINE 50 MG/325 MG/40 MG [Concomitant]
  4. CABOZANTINIB [Suspect]
     Active Substance: CABOZANTINIB
     Indication: RENAL CELL CARCINOMA
     Route: 048
     Dates: start: 20200924, end: 20200924
  5. LISINOPRIL 40 MG [Concomitant]
     Active Substance: LISINOPRIL
  6. METOPROLOL ER 50 MG [Concomitant]
  7. PRAVASTATIN 20 MG [Concomitant]
     Active Substance: PRAVASTATIN

REACTIONS (5)
  - Facial paralysis [None]
  - Hemiparesis [None]
  - Cerebral haemorrhage [None]
  - Brain oedema [None]
  - Breast cancer metastatic [None]

NARRATIVE: CASE EVENT DATE: 20200930
